FAERS Safety Report 26111612 (Version 2)
Quarter: 2025Q4

REPORT INFORMATION
  Report Type: Spontaneous
  Country: IN (occurrence: IN)
  Receive Date: 20251202
  Receipt Date: 20251211
  Transmission Date: 20260118
  Serious: Yes (Other)
  Sender: RANBAXY
  Company Number: IN-SUN PHARMACEUTICAL INDUSTRIES LTD-2025R1-539080

PATIENT
  Age: 85 Year
  Sex: Female

DRUGS (1)
  1. ACECLOFENAC [Suspect]
     Active Substance: ACECLOFENAC
     Indication: Back pain
     Dosage: UNK (100 MG)
     Route: 065

REACTIONS (1)
  - Hidradenitis [Recovered/Resolved]
